FAERS Safety Report 9688785 (Version 1)
Quarter: 2013Q4

REPORT INFORMATION
  Report Type: Spontaneous
  Country: US (occurrence: US)
  Receive Date: 20131114
  Receipt Date: 20131114
  Transmission Date: 20140711
  Serious: Yes (Hospitalization, Other)
  Sender: FDA-Public Use
  Company Number: US-ELI_LILLY_AND_COMPANY-US201311001152

PATIENT
  Age: 71 Year
  Sex: Female

DRUGS (19)
  1. HUMALOG 25% LISPRO, 75% NPL [Suspect]
     Indication: TYPE 2 DIABETES MELLITUS
     Dosage: UNK UNK, UNKNOWN
     Route: 065
     Dates: start: 201303
  2. LISINOPRIL [Concomitant]
  3. LASIX                              /00032601/ [Concomitant]
  4. SYNTHROID [Concomitant]
  5. TOPICORT                           /00370301/ [Concomitant]
  6. KETOVITE                           /00479801/ [Concomitant]
  7. METOPROLOL [Concomitant]
  8. ALLOPURINOL [Concomitant]
  9. VOLTAREN                           /00372301/ [Concomitant]
  10. PRILOSEC                           /00661201/ [Concomitant]
  11. OXYCODONE [Concomitant]
  12. MULTIVITAMINS W/MINERALS [Concomitant]
  13. COLACE [Concomitant]
  14. FLEXERIL                           /00428402/ [Concomitant]
     Dosage: UNK, PRN
  15. VITAMIN D3 [Concomitant]
  16. NITROSTAT [Concomitant]
  17. OMEGA 3 FISH OIL [Concomitant]
  18. CALCIUM [Concomitant]
  19. ASPIRIN [Concomitant]

REACTIONS (5)
  - Cardiac failure congestive [Unknown]
  - Dyspnoea [Unknown]
  - Blindness transient [Unknown]
  - Dyspnoea [Unknown]
  - Visual acuity reduced [Unknown]
